FAERS Safety Report 7278615-5 (Version None)
Quarter: 2011Q1

REPORT INFORMATION
  Report Type: 
  Country: None (occurrence: None)
  Receive Date: 20110207
  Receipt Date: 20110128
  Transmission Date: 20110831
  Serious: Yes (Death)
  Sender: FDA-Public Use
  Company Number: US-SHIRE-SPV1-2009-01244

PATIENT

DRUGS (3)
  1. ADDERALL 10 [Suspect]
     Indication: ATTENTION DEFICIT/HYPERACTIVITY DISORDER
     Dosage: 10 MG, OTHER, AT NIGHT
     Dates: start: 20070701, end: 20081101
  2. ADDERALL 10 [Suspect]
     Dosage: 20 MG, 1X/DAY:QD
     Dates: start: 20081101, end: 20090401
  3. ADDERALL XR 10 [Suspect]
     Indication: ATTENTION DEFICIT/HYPERACTIVITY DISORDER
     Dosage: 20 MG, 1X/DAY:QD
     Dates: end: 20090401

REACTIONS (1)
  - CARDIOMEGALY [None]
